FAERS Safety Report 4303484-2 (Version None)
Quarter: 2004Q1

REPORT INFORMATION
  Report Type: 
  Country: None (occurrence: None)
  Receive Date: 20040223
  Receipt Date: 20040209
  Transmission Date: 20041129
  Serious: Yes (Hospitalization, Other)
  Sender: FDA-Public Use
  Company Number: 2004008866

PATIENT
  Age: 70 Year
  Sex: Male
  Weight: 104.3273 kg

DRUGS (5)
  1. ZOLOFT [Suspect]
     Indication: DEMENTIA ALZHEIMER'S TYPE
     Dosage: 150 MG, ORAL
     Route: 048
     Dates: start: 20030501
  2. GEODON [Suspect]
     Indication: ILL-DEFINED DISORDER
     Dosage: 40 MG (DAILY), ORAL
     Route: 048
     Dates: start: 20031001
  3. TOLTERODINE L-TARTRATE (TOLTERODINE L-TARTRATE) [Concomitant]
  4. OMEPRAZOLE [Concomitant]
  5. RIVASTIGMINE TARTRATE (RIVASTIGMINE TARTRATE) [Concomitant]

REACTIONS (8)
  - ABDOMINAL DISTENSION [None]
  - CONFUSIONAL STATE [None]
  - FAT TISSUE INCREASED [None]
  - FLUID RETENTION [None]
  - PARANOIA [None]
  - SWELLING [None]
  - URINARY INCONTINENCE [None]
  - WEIGHT INCREASED [None]
